FAERS Safety Report 13515786 (Version 3)
Quarter: 2017Q3

REPORT INFORMATION
  Report Type: Spontaneous
  Country: US (occurrence: US)
  Receive Date: 20170504
  Receipt Date: 20170720
  Transmission Date: 20171127
  Serious: Yes (Other)
  Sender: FDA-Public Use
  Company Number: US-MYLANLABS-2017M1027365

PATIENT
  Sex: Male

DRUGS (3)
  1. SABRIL [Suspect]
     Active Substance: VIGABATRIN
     Indication: SEIZURE
     Dosage: UNK
  2. PREDNISONE MYLAN [Suspect]
     Active Substance: PREDNISONE
     Indication: INFANTILE SPASMS
     Dosage: UNK
  3. PREDNISONE MYLAN [Suspect]
     Active Substance: PREDNISONE
     Dosage: 0.25 MG (TAPPERING), BID
     Route: 048

REACTIONS (1)
  - Seizure [Recovered/Resolved]
